FAERS Safety Report 6207700-1 (Version None)
Quarter: 2009Q2

REPORT INFORMATION
  Report Type: 
  Country: None (occurrence: None)
  Receive Date: 20090528
  Receipt Date: 20090519
  Transmission Date: 20091009
  Serious: Yes (Hospitalization)
  Sender: FDA-Public Use
  Company Number: CN-MERCK-0905CHN00026

PATIENT
  Age: 38 Year
  Sex: Male

DRUGS (2)
  1. PROPECIA [Suspect]
     Indication: ALOPECIA
     Route: 048
     Dates: start: 20070501, end: 20081101
  2. PROPECIA [Suspect]
     Route: 048
     Dates: start: 20090201

REACTIONS (2)
  - DIZZINESS [None]
  - TINNITUS [None]
